FAERS Safety Report 8595001-6 (Version None)
Quarter: 2012Q3

REPORT INFORMATION
  Report Type: 
  Country: None (occurrence: None)
  Receive Date: 20120815
  Receipt Date: 20120813
  Transmission Date: 20120928
  Serious: Yes (Other)
  Sender: FDA-Public Use
  Company Number: PHHY2012AR070218

PATIENT
  Sex: Male

DRUGS (1)
  1. DIOVAN [Suspect]
     Indication: BLOOD PRESSURE
     Dosage: 1 DF, DAILY

REACTIONS (5)
  - PALPITATIONS [None]
  - CHRONIC OBSTRUCTIVE PULMONARY DISEASE [None]
  - TACHYCARDIA [None]
  - MUSCLE SPASMS [None]
  - FEELING ABNORMAL [None]
